FAERS Safety Report 24025983 (Version 1)
Quarter: 2024Q2

REPORT INFORMATION
  Report Type: Spontaneous
  Country: US (occurrence: US)
  Receive Date: 20240628
  Receipt Date: 20240628
  Transmission Date: 20240716
  Serious: No
  Sender: FDA-Public Use
  Company Number: US-AUROBINDO-AUR-APL-2023-041589

PATIENT
  Age: 59 Year
  Sex: Female
  Weight: 64 kg

DRUGS (1)
  1. AZELASTINE HYDROCHLORIDE [Suspect]
     Active Substance: AZELASTINE HYDROCHLORIDE
     Indication: Hypersensitivity
     Dosage: 2 DOSAGE FORM, TWO TIMES A DAY
     Route: 065

REACTIONS (5)
  - Dysgeusia [Unknown]
  - Oropharyngeal pain [Unknown]
  - Throat irritation [Unknown]
  - Product container seal issue [Unknown]
  - Product container issue [Unknown]
